FAERS Safety Report 7121961-6 (Version None)
Quarter: 2010Q4

REPORT INFORMATION
  Report Type: 
  Country: None (occurrence: None)
  Receive Date: 20101124
  Receipt Date: 20101116
  Transmission Date: 20110411
  Serious: Yes (Death)
  Sender: FDA-Public Use
  Company Number: A0778547A

PATIENT
  Sex: Male
  Weight: 116.8 kg

DRUGS (1)
  1. AVANDIA [Suspect]
     Indication: TYPE 2 DIABETES MELLITUS
     Route: 048
     Dates: end: 20040101

REACTIONS (7)
  - ANKLE FRACTURE [None]
  - CONDITION AGGRAVATED [None]
  - CONVULSION [None]
  - DEATH [None]
  - FALL [None]
  - MYOCARDIAL INFARCTION [None]
  - TYPE 2 DIABETES MELLITUS [None]
